FAERS Safety Report 14689109 (Version 1)
Quarter: 2018Q1

REPORT INFORMATION
  Report Type: Spontaneous
  Country: US (occurrence: US)
  Receive Date: 20180328
  Receipt Date: 20180328
  Transmission Date: 20180509
  Serious: Yes (Hospitalization, Other)
  Sender: FDA-Public Use
  Company Number: US-GLAXOSMITHKLINE-US2018051246

PATIENT
  Age: 71 Year
  Sex: Female

DRUGS (1)
  1. VENTOLIN HFA [Suspect]
     Active Substance: ALBUTEROL SULFATE
     Indication: ASTHMA
     Dosage: 2 PUFF(S), PRN
     Route: 055
     Dates: start: 1999

REACTIONS (7)
  - Neoplasm malignant [Unknown]
  - Lymphadenectomy [Unknown]
  - Tumour excision [Unknown]
  - Pain [Unknown]
  - Wrong technique in product usage process [Unknown]
  - Throat cancer [Unknown]
  - Pharyngeal operation [Unknown]

NARRATIVE: CASE EVENT DATE: 201605
